FAERS Safety Report 4445405-8 (Version None)
Quarter: 2004Q3

REPORT INFORMATION
  Report Type: 
  Country: None (occurrence: None)
  Receive Date: 20040730
  Receipt Date: 20031111
  Transmission Date: 20050211
  Serious: No
  Sender: FDA-Public Use
  Company Number: 139557USA

PATIENT
  Age: 60 Year
  Sex: Male
  Weight: 101.6057 kg

DRUGS (1)
  1. ETOPOSIDE [Suspect]
     Indication: NON-SMALL CELL LUNG CANCER
     Dosage: 240 MILLIGRAM INTRAVENOUS (NOS)
     Route: 042
     Dates: start: 20031110

REACTIONS (4)
  - BACK PAIN [None]
  - FLUSHING [None]
  - NAUSEA [None]
  - TACHYCARDIA [None]
